FAERS Safety Report 5873285-2 (Version None)
Quarter: 2008Q3

REPORT INFORMATION
  Report Type: 
  Country: None (occurrence: None)
  Receive Date: 20080908
  Receipt Date: 20080828
  Transmission Date: 20090109
  Serious: Yes (Other)
  Sender: FDA-Public Use
  Company Number: US-JNJFOC-20080706410

PATIENT
  Sex: Female
  Weight: 90.72 kg

DRUGS (7)
  1. REMICADE [Suspect]
     Indication: RHEUMATOID ARTHRITIS
     Route: 042
  2. FOLIC ACID [Concomitant]
  3. METHOTREXATE [Concomitant]
  4. NEXIUM [Concomitant]
  5. ULTRAM [Concomitant]
  6. PREDNISONE [Concomitant]
  7. DOXEPIN HCL [Concomitant]

REACTIONS (2)
  - OESOPHAGEAL SPASM [None]
  - PUSTULAR PSORIASIS [None]
